FAERS Safety Report 18576767 (Version 1)
Quarter: 2020Q4

REPORT INFORMATION
  Report Type: Spontaneous
  Country: AU (occurrence: AU)
  Receive Date: 20201203
  Receipt Date: 20201203
  Transmission Date: 20210114
  Serious: Yes (Life-Threatening, Hospitalization)
  Sender: FDA-Public Use
  Company Number: AU-MYLANLABS-2020M1099168

PATIENT
  Age: 49 Year
  Sex: Female

DRUGS (4)
  1. NITRIC OXIDE. [Suspect]
     Active Substance: NITRIC OXIDE
     Indication: DRUG THERAPY
  2. EPINEPHRINE. [Suspect]
     Active Substance: EPINEPHRINE
     Indication: DRUG THERAPY
     Dosage: 0.15 MICROG/KG/MIN
     Route: 065
  3. MILRINONE [Suspect]
     Active Substance: MILRINONE
     Indication: DRUG THERAPY
     Dosage: 0.5 MICROG/KG/MIN
     Route: 065
  4. HEPARIN [Suspect]
     Active Substance: HEPARIN SODIUM
     Indication: DRUG THERAPY
     Dosage: INFUSION

REACTIONS (1)
  - Drug ineffective [Unknown]
